FAERS Safety Report 15111754 (Version 2)
Quarter: 2018Q3

REPORT INFORMATION
  Report Type: Spontaneous
  Country: JP (occurrence: JP)
  Receive Date: 20180705
  Receipt Date: 20180716
  Transmission Date: 20181010
  Serious: Yes (Disabling)
  Sender: FDA-Public Use
  Company Number: JP-BEH-2018092457

PATIENT
  Age: 83 Year
  Sex: Male
  Weight: 69.6 kg

DRUGS (24)
  1. KCENTRA [Suspect]
     Active Substance: COAGULATION FACTOR IX HUMAN\COAGULATION FACTOR VII HUMAN\COAGULATION FACTOR X HUMAN\PROTEIN C\PROTEIN S HUMAN\PROTHROMBIN
     Indication: SURGERY
     Dosage: 1750 IU, SINGLE
     Route: 042
     Dates: start: 20180307
  2. ARTIST [Concomitant]
     Active Substance: CARVEDILOL
     Route: 048
  3. EFIENT [Concomitant]
     Active Substance: PRASUGREL HYDROCHLORIDE
     Dosage: UNK
     Route: 048
     Dates: end: 20180305
  4. CARVEDILOL. [Concomitant]
     Active Substance: CARVEDILOL
     Route: 048
  5. SENNOSIDE                          /00571901/ [Concomitant]
     Active Substance: SENNOSIDES A AND B
     Route: 048
  6. LASIX [Concomitant]
     Active Substance: FUROSEMIDE
     Route: 048
  7. KCENTRA [Suspect]
     Active Substance: COAGULATION FACTOR IX HUMAN\COAGULATION FACTOR VII HUMAN\COAGULATION FACTOR X HUMAN\PROTEIN C\PROTEIN S HUMAN\PROTHROMBIN
     Indication: HAEMORRHAGE
     Dosage: 1750 IU, SINGLE
     Route: 042
     Dates: start: 20180426, end: 20180426
  8. VEEN D [Concomitant]
     Active Substance: CALCIUM CHLORIDE\DEXTROSE\POTASSIUM CHLORIDE\SODIUM ACETATE\SODIUM CHLORIDE
     Dosage: UNK
     Route: 065
     Dates: start: 20180308, end: 20180311
  9. WARFARIN [Concomitant]
     Active Substance: WARFARIN
     Dosage: 1.5 MG, UNK
     Route: 048
     Dates: start: 20180315, end: 20180424
  10. ASPIRIN. [Concomitant]
     Active Substance: ASPIRIN
     Dosage: UNK
     Route: 048
     Dates: end: 20180305
  11. PITAVASTATIN. [Concomitant]
     Active Substance: PITAVASTATIN CALCIUM
     Route: 048
  12. ZETIA [Concomitant]
     Active Substance: EZETIMIBE
     Route: 048
  13. FRANDOL [Concomitant]
     Active Substance: ISOSORBIDE DINITRATE
     Route: 065
  14. FEBURIC [Concomitant]
     Active Substance: FEBUXOSTAT
     Dosage: UNK
     Route: 048
  15. ROZEREM [Concomitant]
     Active Substance: RAMELTEON
     Route: 048
  16. EPADEL                             /01682401/ [Concomitant]
     Active Substance: ICOSAPENT
     Route: 048
  17. KAYTWO N [Concomitant]
     Active Substance: MENATETRENONE
     Dosage: 20 MG, UNK
     Route: 065
     Dates: start: 20180425, end: 20180425
  18. WARFARIN [Concomitant]
     Active Substance: WARFARIN
     Indication: PULMONARY EMBOLISM
     Dosage: 1.5 MG, UNK
     Route: 048
     Dates: end: 20180304
  19. LANSOPRAZOLE ACTAVIS [Concomitant]
     Active Substance: LANSOPRAZOLE
     Dosage: UNK
     Route: 048
     Dates: end: 20180305
  20. CANDESARTAN. [Concomitant]
     Active Substance: CANDESARTAN
     Route: 048
  21. AMITIZA [Concomitant]
     Active Substance: LUBIPROSTONE
     Route: 048
  22. SOLDEM 3A [Concomitant]
     Active Substance: CARBOHYDRATES\POTASSIUM CHLORIDE\SODIUM CHLORIDE\SODIUM LACTATE
     Dosage: UNK
     Route: 065
     Dates: start: 20180308, end: 20180311
  23. KAYTWO [Concomitant]
     Active Substance: MENATETRENONE
     Dosage: 20 MG, UNK
     Route: 065
     Dates: start: 20180305, end: 20180306
  24. EFIENT [Concomitant]
     Active Substance: PRASUGREL HYDROCHLORIDE
     Dosage: UNK
     Route: 048
     Dates: end: 20180425

REACTIONS (1)
  - Subdural haematoma [Recovered/Resolved]

NARRATIVE: CASE EVENT DATE: 20180425
